FAERS Safety Report 6375252-1 (Version None)
Quarter: 2009Q3

REPORT INFORMATION
  Report Type: 
  Country: None (occurrence: None)
  Receive Date: 20090924
  Receipt Date: 20090915
  Transmission Date: 20100115
  Serious: Yes (Death, Hospitalization)
  Sender: FDA-Public Use
  Company Number: A0713340A

PATIENT
  Age: 76 Year
  Sex: Male
  Weight: 81.8 kg

DRUGS (12)
  1. AVANDIA [Suspect]
     Indication: DIABETES MELLITUS
     Dosage: 8MG PER DAY
     Route: 048
     Dates: start: 19990101, end: 20060320
  2. AMARYL [Concomitant]
     Dates: end: 20060321
  3. DARVOCET [Concomitant]
  4. COREG [Concomitant]
     Dates: end: 20060321
  5. LASIX [Concomitant]
     Dates: end: 20060321
  6. ZOCOR [Concomitant]
     Dates: end: 20060321
  7. ASPIRIN [Concomitant]
  8. PLAVIX [Concomitant]
  9. NORVASC [Concomitant]
  10. NEURONTIN [Concomitant]
  11. DARVOCET [Concomitant]
  12. TERAZOSIN HCL [Concomitant]

REACTIONS (11)
  - ANGINA PECTORIS [None]
  - ANOXIC ENCEPHALOPATHY [None]
  - CARDIAC FAILURE CONGESTIVE [None]
  - CARDIO-RESPIRATORY ARREST [None]
  - CARDIOGENIC SHOCK [None]
  - CORONARY ARTERY DISEASE [None]
  - MYOCARDIAL INFARCTION [None]
  - PLEURAL EFFUSION [None]
  - PNEUMONIA [None]
  - PULMONARY OEDEMA [None]
  - RIB FRACTURE [None]
